FAERS Safety Report 5830860-9 (Version None)
Quarter: 2008Q3

REPORT INFORMATION
  Report Type: 
  Country: None (occurrence: None)
  Receive Date: 20080801
  Receipt Date: 20080725
  Transmission Date: 20090109
  Serious: Yes (Hospitalization)
  Sender: FDA-Public Use
  Company Number: US-GENENTECH-265366

PATIENT
  Sex: Female
  Weight: 81.5 kg

DRUGS (20)
  1. BEVACIZUMAB [Suspect]
     Indication: BREAST CANCER METASTATIC
     Dosage: 910 MG, UNK
     Route: 042
     Dates: start: 20071010, end: 20080319
  2. ABRAXANE [Suspect]
     Indication: BREAST CANCER METASTATIC
     Dosage: 255 MG, UNK
     Route: 042
     Dates: start: 20071010, end: 20080319
  3. MELOXICAM [Concomitant]
     Indication: PAIN
     Dosage: UNK
     Dates: start: 20070901
  4. ATORVASTATIN [Concomitant]
     Indication: DIABETES MELLITUS
     Dosage: UNK
     Route: 048
     Dates: start: 20080212
  5. COLACE [Concomitant]
     Indication: CONSTIPATION
     Dosage: UNK
     Route: 048
     Dates: start: 20080211
  6. SENNA [Concomitant]
     Indication: CONSTIPATION
     Dosage: UNK
     Route: 048
     Dates: start: 20080111
  7. BENADRYL [Concomitant]
     Indication: HYPERSENSITIVITY
     Dosage: UNK
     Route: 048
     Dates: start: 20080206
  8. TYLENOL [Concomitant]
     Indication: PAIN
     Dosage: UNK
     Route: 048
     Dates: start: 20071227
  9. COMPAZINE [Concomitant]
     Indication: NAUSEA
     Dosage: UNK
     Route: 048
     Dates: start: 20071024
  10. METFORMIN HCL [Concomitant]
     Indication: DIABETES MELLITUS
     Dosage: UNK
     Route: 048
     Dates: start: 20070906
  11. GLIPIZIDE [Concomitant]
     Indication: DIABETES MELLITUS
     Dosage: UNK
     Route: 048
     Dates: start: 20070906
  12. LISINOPRIL [Concomitant]
     Indication: HYPERTENSION
     Dosage: UNK
     Route: 048
     Dates: start: 20070906
  13. ASCORBIC ACID [Concomitant]
     Indication: DRUG USE FOR UNKNOWN INDICATION
     Dosage: UNK
     Route: 048
     Dates: start: 20070906
  14. VITAMIN B [Concomitant]
     Indication: PROPHYLAXIS
     Dosage: UNK
     Route: 048
     Dates: start: 20070906
  15. DARVOCET [Concomitant]
     Indication: PAIN
     Dosage: UNK
     Dates: start: 20070901
  16. NORTRIPTYLINE HCL [Concomitant]
     Indication: PAIN
     Dosage: UNK
     Dates: start: 20070901
  17. LOVAZA [Concomitant]
     Indication: DRUG USE FOR UNKNOWN INDICATION
  18. FLAX [Concomitant]
     Indication: DRUG USE FOR UNKNOWN INDICATION
  19. ARNICA [Concomitant]
     Indication: DRUG USE FOR UNKNOWN INDICATION
  20. OXYCODONE HCL [Concomitant]
     Indication: DRUG USE FOR UNKNOWN INDICATION

REACTIONS (1)
  - ATAXIA [None]
